FAERS Safety Report 11470852 (Version 3)
Quarter: 2015Q3

REPORT INFORMATION
  Report Type: Report from Study
  Country: FI (occurrence: FI)
  Receive Date: 20150908
  Receipt Date: 20150917
  Transmission Date: 20151125
  Serious: Yes (Hospitalization)
  Sender: FDA-Public Use
  Company Number: FI-ABBVIE-15P-055-1456920-00

PATIENT
  Age: 74 Year
  Sex: Female

DRUGS (3)
  1. DUODOPA [Suspect]
     Active Substance: CARBIDOPA\LEVODOPA
     Dosage: MD: 5ML, CD: 2.4ML/H, ED: 0.5ML
     Route: 050
     Dates: start: 20150108
  2. ZINACEF [Concomitant]
     Active Substance: CEFUROXIME SODIUM
     Indication: ANTIBIOTIC PROPHYLAXIS
     Dates: start: 20150108
  3. DUODOPA [Suspect]
     Active Substance: CARBIDOPA\LEVODOPA
     Indication: PARKINSON^S DISEASE
     Route: 050
     Dates: start: 201411, end: 201501

REACTIONS (5)
  - Pyrexia [Recovered/Resolved]
  - Respiratory failure [Recovered/Resolved]
  - Pneumoperitoneum [Recovered/Resolved]
  - Malaise [Recovered/Resolved]
  - Polymyalgia rheumatica [Unknown]

NARRATIVE: CASE EVENT DATE: 2015
